FAERS Safety Report 10507751 (Version 2)
Quarter: 2014Q4

REPORT INFORMATION
  Report Type: Report from Study
  Country: TW (occurrence: TW)
  Receive Date: 20141009
  Receipt Date: 20141106
  Transmission Date: 20150528
  Serious: Yes (Hospitalization)
  Sender: FDA-Public Use
  Company Number: TW-ABBVIE-14K-153-1292280-00

PATIENT
  Age: 52 Year
  Sex: Female
  Weight: 55 kg

DRUGS (2)
  1. HUMIRA [Suspect]
     Active Substance: ADALIMUMAB
     Route: 058
     Dates: start: 20141009
  2. HUMIRA [Suspect]
     Active Substance: ADALIMUMAB
     Indication: RHEUMATOID ARTHRITIS
     Route: 058
     Dates: start: 20130516, end: 20140821

REACTIONS (2)
  - Gastric ulcer [Recovering/Resolving]
  - Gastric haemorrhage [Recovering/Resolving]

NARRATIVE: CASE EVENT DATE: 20140928
